FAERS Safety Report 19999507 (Version 2)
Quarter: 2021Q4

REPORT INFORMATION
  Report Type: Spontaneous
  Country: JP (occurrence: JP)
  Receive Date: 20211027
  Receipt Date: 20211104
  Transmission Date: 20220303
  Serious: Yes (Death, Other)
  Sender: FDA-Public Use
  Company Number: JP-JNJFOC-20211040478

PATIENT
  Age: 82 Year
  Sex: Female

DRUGS (7)
  1. OPSUMIT [Suspect]
     Active Substance: MACITENTAN
     Indication: Pulmonary hypertension
     Route: 048
     Dates: start: 20210615, end: 20210903
  2. OPSUMIT [Suspect]
     Active Substance: MACITENTAN
     Indication: Pulmonary arterial hypertension
  3. ADCIRCA [Concomitant]
     Active Substance: TADALAFIL
     Indication: Pulmonary arterial hypertension
     Route: 048
     Dates: end: 20210916
  4. TOLVAPTAN [Concomitant]
     Active Substance: TOLVAPTAN
     Indication: Cardiac failure chronic
     Route: 048
     Dates: start: 20210710, end: 20210916
  5. LASIX [Concomitant]
     Active Substance: FUROSEMIDE
     Indication: Cardiac failure chronic
     Route: 048
     Dates: end: 20210916
  6. SPIRONOLACTONE [Concomitant]
     Active Substance: SPIRONOLACTONE
     Indication: Cardiac failure chronic
     Route: 048
     Dates: end: 20210916
  7. LEVOTHYROXINE [Concomitant]
     Active Substance: LEVOTHYROXINE
     Indication: Hypothyroidism
     Route: 048
     Dates: end: 20210916

REACTIONS (6)
  - Pneumonia bacterial [Fatal]
  - Azotaemia [Fatal]
  - Chronic kidney disease [Unknown]
  - Left ventricular failure [Unknown]
  - Renal impairment [Unknown]
  - Hypotension [Unknown]

NARRATIVE: CASE EVENT DATE: 20210101
